FAERS Safety Report 9688498 (Version 1)
Quarter: 2013Q4

REPORT INFORMATION
  Report Type: Spontaneous
  Country: US (occurrence: None)
  Receive Date: 20131112
  Receipt Date: 20131112
  Transmission Date: 20140711
  Serious: Yes (Other)
  Sender: FDA-Public Use
  Company Number: 2013P1020655

PATIENT
  Age: 13 Year
  Sex: Male

DRUGS (1)
  1. MYORISAN [Suspect]
     Indication: ACNE
     Dosage: 40 MG; BID; PO
     Route: 048
     Dates: start: 20130923, end: 20131028

REACTIONS (1)
  - Depression [None]
